FAERS Safety Report 18100052 (Version 1)
Quarter: 2020Q3

REPORT INFORMATION
  Report Type: Other
  Country: DK (occurrence: DK)
  Receive Date: 20200731
  Receipt Date: 20200731
  Transmission Date: 20201103
  Serious: Yes (Other)
  Sender: FDA-Public Use
  Company Number: DK-EMD SERONO-E2B_90079014

PATIENT
  Age: 56 Year
  Sex: Male
  Weight: 88 kg

DRUGS (7)
  1. THIAZIDE [Concomitant]
     Active Substance: UNSPECIFIED INGREDIENT
     Indication: PRODUCT USED FOR UNKNOWN INDICATION
     Dosage: UNK
  2. SIMVASTATIN. [Concomitant]
     Active Substance: SIMVASTATIN
     Indication: ENDOTHELIAL DYSFUNCTION
     Dosage: UNK
  3. METFORMIN HYDROCHLORIDE. [Suspect]
     Active Substance: METFORMIN HYDROCHLORIDE
     Indication: TYPE 2 DIABETES MELLITUS
     Dosage: UNK
     Dates: start: 2003, end: 2004
  4. ENALAPRIL [Concomitant]
     Active Substance: ENALAPRIL
     Indication: ENDOTHELIAL DYSFUNCTION
     Dosage: UNKNOWN
  5. METFORMIN HYDROCHLORIDE. [Suspect]
     Active Substance: METFORMIN HYDROCHLORIDE
     Dosage: UNK
     Dates: start: 2004, end: 2008
  6. INSULIN INJECTION, BIPHASIC (INSULIN BOVINE\INSULIN PORCINE) [Suspect]
     Active Substance: INSULIN BEEF/PORK
     Indication: TYPE 2 DIABETES MELLITUS
     Dosage: 38 UNITS IN MORNING, 30 UNITS IN EVENING
     Dates: start: 2008
  7. ACETYLSALICYLIC ACID [Concomitant]
     Active Substance: ASPIRIN
     Indication: ENDOTHELIAL DYSFUNCTION
     Dosage: UNK

REACTIONS (2)
  - Glycosylated haemoglobin increased [Recovering/Resolving]
  - Diabetes mellitus inadequate control [Recovering/Resolving]

NARRATIVE: CASE EVENT DATE: 2008
